FAERS Safety Report 8254583-4 (Version None)
Quarter: 2012Q2

REPORT INFORMATION
  Report Type: 
  Country: None (occurrence: None)
  Receive Date: 20120403
  Receipt Date: 20120326
  Transmission Date: 20120825
  Serious: Yes (Hospitalization)
  Sender: FDA-Public Use
  Company Number: FR-SP-2012-03438

PATIENT
  Sex: Male

DRUGS (2)
  1. IRBESARTAN [Concomitant]
     Indication: HYPERTENSION
     Route: 048
  2. IMMUCYST [Suspect]
     Indication: BLADDER CANCER
     Route: 042
     Dates: start: 20110916, end: 20110916

REACTIONS (8)
  - INFLUENZA LIKE ILLNESS [None]
  - GENERAL PHYSICAL HEALTH DETERIORATION [None]
  - NIGHT SWEATS [None]
  - BOVINE TUBERCULOSIS [None]
  - LIVER DISORDER [None]
  - PYREXIA [None]
  - URINARY RETENTION [None]
  - PULMONARY TUBERCULOSIS [None]
